FAERS Safety Report 20752826 (Version 1)
Quarter: 2022Q2

REPORT INFORMATION
  Report Type: Spontaneous
  Country: US (occurrence: None)
  Receive Date: 20220426
  Receipt Date: 20220426
  Transmission Date: 20220721
  Serious: No
  Sender: FDA-Public Use
  Company Number: US-ROCHE-2913162

PATIENT
  Sex: Female

DRUGS (2)
  1. ESBRIET [Suspect]
     Active Substance: PIRFENIDONE
     Indication: Idiopathic pulmonary fibrosis
     Dosage: 1 TAB 3 TIMES DAILY WEEK-1, 2 TAB 3 TIMES DAILY WEEK -2, 3 TAB 3 TIMES DAILY WEEK-3.
     Route: 048
     Dates: start: 202108
  2. ESBRIET [Suspect]
     Active Substance: PIRFENIDONE
     Route: 048
     Dates: start: 20210818

REACTIONS (2)
  - Cognitive disorder [Unknown]
  - Diarrhoea [Unknown]
